FAERS Safety Report 10405879 (Version 7)
Quarter: 2016Q4

REPORT INFORMATION
  Report Type: Report from Study
  Country: US (occurrence: US)
  Receive Date: 20140825
  Receipt Date: 20161118
  Transmission Date: 20170206
  Serious: Yes (Life-Threatening, Hospitalization, Other)
  Sender: FDA-Public Use
  Company Number: PHHO2014US011376

PATIENT
  Age: 65 Year
  Sex: Male
  Weight: 80.73 kg

DRUGS (27)
  1. ACZ885 [Suspect]
     Active Substance: CANAKINUMAB
     Dosage: 50 MG, UNK
     Route: 058
     Dates: start: 20120319
  2. CRESTOR [Concomitant]
     Active Substance: ROSUVASTATIN CALCIUM
     Indication: DYSLIPIDAEMIA
     Dosage: 5 MG TAB, QD
     Route: 048
     Dates: start: 20110923
  3. AMBIEN [Concomitant]
     Active Substance: ZOLPIDEM TARTRATE
     Indication: SLEEP DISORDER
     Dosage: 0.5 MG (1/2 TAB), PRN
     Route: 048
     Dates: start: 20140818
  4. ACZ885 [Suspect]
     Active Substance: CANAKINUMAB
     Indication: CARDIOVASCULAR EVENT PROPHYLAXIS
     Dosage: 50 MG, (1 ML EACH ARM 5 G, Q3MONTHS)
     Route: 058
     Dates: start: 20111205
  5. ALEVE [Concomitant]
     Active Substance: NAPROXEN SODIUM
     Indication: PRODUCT USED FOR UNKNOWN INDICATION
     Route: 048
  6. ACZ885 [Suspect]
     Active Substance: CANAKINUMAB
     Dosage: 50 MG, UNK
     Route: 058
     Dates: start: 20120605
  7. ACZ885 [Suspect]
     Active Substance: CANAKINUMAB
     Dosage: 50 MG, UNK
     Route: 058
     Dates: start: 20130528
  8. COREG [Concomitant]
     Active Substance: CARVEDILOL
     Indication: ATRIOVENTRICULAR BLOCK COMPLETE
     Dosage: 12.5 MG, BID
     Route: 048
     Dates: start: 20131120
  9. PLAVIX [Concomitant]
     Active Substance: CLOPIDOGREL BISULFATE
     Indication: CORONARY ARTERY DISEASE
     Dosage: 75 MG, QD, TAB
     Route: 048
     Dates: start: 20061103
  10. ACZ885 [Suspect]
     Active Substance: CANAKINUMAB
     Dosage: 50 MG, UNK
     Route: 058
     Dates: start: 20111222
  11. ACZ885 [Suspect]
     Active Substance: CANAKINUMAB
     Dosage: 50 MG, UNK
     Route: 058
     Dates: start: 20140317
  12. CISPLATINUM [Suspect]
     Active Substance: CISPLATIN
     Indication: LUNG ADENOCARCINOMA STAGE III
  13. CRESTOR [Concomitant]
     Active Substance: ROSUVASTATIN CALCIUM
     Indication: CORONARY ARTERY DISEASE
  14. NEXIUM [Concomitant]
     Active Substance: ESOMEPRAZOLE MAGNESIUM
     Indication: REFLUX GASTRITIS
     Dosage: 1 DF, QD
     Route: 048
     Dates: start: 20151130
  15. ZESTRIL [Concomitant]
     Active Substance: LISINOPRIL
     Indication: HYPERTENSION
     Dosage: 5 MG, QD
     Route: 048
     Dates: start: 20130612
  16. ACZ885 [Suspect]
     Active Substance: CANAKINUMAB
     Dosage: 50 MG, UNK
     Route: 058
     Dates: start: 20130327
  17. ACZ885 [Suspect]
     Active Substance: CANAKINUMAB
     Dosage: 50 MG, UNK
     Route: 058
     Dates: start: 20131120
  18. ACZ885 [Suspect]
     Active Substance: CANAKINUMAB
     Dosage: 50 MG, UNK
     Route: 058
     Dates: start: 20140527, end: 20140527
  19. PRINIVIL [Concomitant]
     Active Substance: LISINOPRIL
     Indication: HYPERTENSION
     Dosage: 5 MG TAB, QD
     Route: 048
     Dates: start: 20130612
  20. ACZ885 [Suspect]
     Active Substance: CANAKINUMAB
     Dosage: 50 MG, UNK
     Route: 058
     Dates: start: 20120827
  21. ACZ885 [Suspect]
     Active Substance: CANAKINUMAB
     Dosage: 50 MG, UNK
     Route: 058
     Dates: start: 20121129
  22. ZETIA [Concomitant]
     Active Substance: EZETIMIBE
     Indication: DYSLIPIDAEMIA
     Dosage: 10 MG TAB, QD
     Route: 048
     Dates: start: 20120906
  23. VITAMIN D3 [Concomitant]
     Active Substance: CHOLECALCIFEROL
     Dosage: 1000 U TAB
  24. ACZ885 [Suspect]
     Active Substance: CANAKINUMAB
     Dosage: 50 MG, UNK
     Route: 058
     Dates: start: 20130826
  25. ETOPOSIDE. [Suspect]
     Active Substance: ETOPOSIDE
     Indication: LUNG ADENOCARCINOMA STAGE III
  26. LOFIBRA [Concomitant]
     Active Substance: FENOFIBRATE
     Indication: DYSLIPIDAEMIA
     Dosage: 54 MG, QD, TAB
     Route: 048
     Dates: start: 20120713
  27. PROSCAR [Concomitant]
     Active Substance: FINASTERIDE
     Indication: BENIGN PROSTATIC HYPERPLASIA
     Dosage: 5 MG TAB, QD
     Route: 048
     Dates: start: 20040512

REACTIONS (2)
  - Febrile neutropenia [Recovered/Resolved]
  - Lung adenocarcinoma stage III [Not Recovered/Not Resolved]

NARRATIVE: CASE EVENT DATE: 20140328
